FAERS Safety Report 23182141 (Version 1)
Quarter: 2023Q4

REPORT INFORMATION
  Report Type: Spontaneous
  Country: US (occurrence: None)
  Receive Date: 20231114
  Receipt Date: 20231114
  Transmission Date: 20240110
  Serious: Yes (Other)
  Sender: FDA-Public Use
  Company Number: None

PATIENT
  Age: 75 Year
  Sex: 0

DRUGS (1)
  1. IBRANCE [Suspect]
     Active Substance: PALBOCICLIB

REACTIONS (4)
  - White blood cell count decreased [None]
  - Pyrexia [None]
  - Fatigue [None]
  - Rhinorrhoea [None]

NARRATIVE: CASE EVENT DATE: 20231114
